FAERS Safety Report 4351093-1 (Version None)
Quarter: 2004Q2

REPORT INFORMATION
  Report Type: 
  Country: None (occurrence: None)
  Receive Date: 20040427
  Receipt Date: 20040414
  Transmission Date: 20050107
  Serious: Yes (Disabling, Other)
  Sender: FDA-Public Use
  Company Number: 2004198875GB

PATIENT
  Age: 44 Year
  Sex: Male
  Weight: 102 kg

DRUGS (8)
  1. CAVERJECT [Suspect]
     Indication: ERECTILE DYSFUNCTION
     Dosage: 20 UG, PRN, INT CORP CAVERN
     Route: 011
  2. MUSE [Suspect]
     Indication: ERECTILE DYSFUNCTION
     Dosage: 100 UG, PRN
  3. ACTRAPID INSULIN NOVO (INSULIN) [Concomitant]
  4. ULTRATARD (INSULIN HUMAN ZINC SUSPENSION) [Concomitant]
  5. FUROSEMIDE [Concomitant]
  6. TILDIEM [Concomitant]
  7. NICORANDIL [Concomitant]
  8. CO-CODAMOL [Concomitant]

REACTIONS (10)
  - BENIGN PENILE NEOPLASM [None]
  - DEPRESSION [None]
  - DYSPAREUNIA [None]
  - ERECTILE DYSFUNCTION [None]
  - PAINFUL ERECTION [None]
  - PENILE PAIN [None]
  - REACTION TO DRUG EXCIPIENT [None]
  - TESTICULAR PAIN [None]
  - URETHRAL DISORDER [None]
  - URETHRAL PAIN [None]
